FAERS Safety Report 10434076 (Version 3)
Quarter: 2015Q1

REPORT INFORMATION
  Report Type: Spontaneous
  Country: US (occurrence: US)
  Receive Date: 20140905
  Receipt Date: 20150219
  Transmission Date: 20150720
  Serious: Yes (Death, Hospitalization)
  Sender: FDA-Public Use
  Company Number: US-SA-2014SA118915

PATIENT
  Age: 59 Year
  Sex: Female

DRUGS (12)
  1. PLAVIX [Suspect]
     Active Substance: CLOPIDOGREL BISULFATE
     Indication: STENT PLACEMENT
     Route: 048
     Dates: start: 20021101, end: 20030601
  2. DIGITEK [Concomitant]
     Active Substance: DIGOXIN
  3. LISINOPRIL. [Concomitant]
     Active Substance: LISINOPRIL
     Dosage: 20 BID
  4. COREG [Concomitant]
     Active Substance: CARVEDILOL
     Dosage: 3.125 BID.
  5. INSULIN [Concomitant]
     Active Substance: INSULIN NOS
     Dosage: INSULIN 70/30 20 UNITS IN THE MORNING, 4 UNITS IN THE EVENING.
  6. CLONIDINE. [Concomitant]
     Active Substance: CLONIDINE
     Dosage: 0.1 BID.
  7. ASPIRIN. [Suspect]
     Active Substance: ASPIRIN
     Route: 065
     Dates: start: 200201
  8. ISOSORBIDE [Concomitant]
     Active Substance: ISOSORBIDE
     Dosage: 30 BID
  9. LIPITOR [Concomitant]
     Active Substance: ATORVASTATIN CALCIUM
     Dosage: 20 HS
  10. POTASSIUM [Concomitant]
     Active Substance: POTASSIUM
  11. LASIX [Concomitant]
     Active Substance: FUROSEMIDE
     Dosage: STRENGTH:40MG; 1-1/2 PILLS A DAY.
  12. DIOVAN [Concomitant]
     Active Substance: VALSARTAN
     Dosage: 160 BID

REACTIONS (3)
  - Multiple injuries [Fatal]
  - Platelet count decreased [Fatal]
  - Gastrointestinal haemorrhage [Fatal]

NARRATIVE: CASE EVENT DATE: 20030521
